FAERS Safety Report 21985314 (Version 1)
Quarter: 2023Q1

REPORT INFORMATION
  Report Type: Spontaneous
  Country: US (occurrence: US)
  Receive Date: 20230213
  Receipt Date: 20230213
  Transmission Date: 20230417
  Serious: Yes (Hospitalization)
  Sender: FDA-Public Use
  Company Number: US-PFIZER INC-202300061093

PATIENT
  Age: 61 Year
  Sex: Male
  Weight: 105.23 kg

DRUGS (7)
  1. VYNDAMAX [Suspect]
     Active Substance: TAFAMIDIS
     Indication: Cardiac amyloidosis
     Dosage: 61 MG, 1X/DAY
     Route: 048
     Dates: start: 202211
  2. METOPROLOL [Concomitant]
     Active Substance: METOPROLOL
     Indication: Cardiac failure congestive
     Dosage: 50MG 1.5 PILLS A DAY BY MOUTH
     Route: 048
     Dates: start: 202206
  3. METOPROLOL [Concomitant]
     Active Substance: METOPROLOL
     Indication: Atrial fibrillation
  4. FUROSEMIDE [Concomitant]
     Active Substance: FUROSEMIDE
     Indication: Cardiac failure congestive
     Dosage: 20 MG, 1X/DAY
     Route: 048
     Dates: start: 202206
  5. FUROSEMIDE [Concomitant]
     Active Substance: FUROSEMIDE
     Indication: Atrial fibrillation
  6. AMIODARONE [Concomitant]
     Active Substance: AMIODARONE
     Indication: Atrial fibrillation
     Dosage: 200 MG, 1X/DAY
     Route: 048
     Dates: start: 202206, end: 202301
  7. AMIODARONE [Concomitant]
     Active Substance: AMIODARONE
     Indication: Cardiac failure congestive

REACTIONS (1)
  - Cerebrovascular accident [Recovering/Resolving]

NARRATIVE: CASE EVENT DATE: 20230202
